FAERS Safety Report 25789377 (Version 1)
Quarter: 2025Q3

REPORT INFORMATION
  Report Type: Spontaneous
  Country: US (occurrence: US)
  Receive Date: 20250911
  Receipt Date: 20250911
  Transmission Date: 20251020
  Serious: No
  Sender: BIOGEN
  Company Number: US-BIOGEN-2024BI01267973

PATIENT
  Sex: Male

DRUGS (7)
  1. VUMERITY [Suspect]
     Active Substance: DIROXIMEL FUMARATE
     Indication: Relapsing-remitting multiple sclerosis
     Dosage: TAKE 2 CAPSULES (462MG) BY MOUTH TWICE DAILY, EVERY MORNING AND BEFORE BEDTIME
     Route: 050
  2. METFORMIN HYDROCHLORIDE [Concomitant]
     Active Substance: METFORMIN HYDROCHLORIDE
     Route: 050
  3. ATORVASTATIN CALCIUM [Concomitant]
     Active Substance: ATORVASTATIN CALCIUM
     Route: 050
  4. LOSARTAN POTASSIUM/HYDRO [Concomitant]
     Route: 050
  5. CARVEDILOL [Concomitant]
     Active Substance: CARVEDILOL
     Route: 050
  6. DUTASTERIDE [Concomitant]
     Active Substance: DUTASTERIDE
     Route: 050
  7. TAMSULOSIN HYDROCHLORIDE [Concomitant]
     Active Substance: TAMSULOSIN HYDROCHLORIDE
     Route: 050

REACTIONS (1)
  - Asthenia [Unknown]
